FAERS Safety Report 23302430 (Version 1)
Quarter: 2023Q4

REPORT INFORMATION
  Report Type: Spontaneous
  Country: US (occurrence: US)
  Receive Date: 20231215
  Receipt Date: 20231215
  Transmission Date: 20240109
  Serious: Yes (Other)
  Sender: FDA-Public Use
  Company Number: US-GLAXOSMITHKLINE-US2023170259

PATIENT

DRUGS (1)
  1. ADVAIR DISKUS [Suspect]
     Active Substance: FLUTICASONE PROPIONATE\SALMETEROL XINAFOATE
     Indication: Chronic obstructive pulmonary disease
     Dosage: UNK, BID 250/50MCG
     Route: 055

REACTIONS (6)
  - Brain injury [Unknown]
  - Depression [Unknown]
  - Therapy cessation [Unknown]
  - Neurological rehabilitation [Unknown]
  - Spinal column injury [Unknown]
  - Nerve compression [Unknown]

NARRATIVE: CASE EVENT DATE: 20230101
